FAERS Safety Report 9608083 (Version 2)
Quarter: 2013Q4

REPORT INFORMATION
  Report Type: Spontaneous
  Country: JP (occurrence: JP)
  Receive Date: 20131009
  Receipt Date: 20131224
  Transmission Date: 20140711
  Serious: Yes (Hospitalization)
  Sender: FDA-Public Use
  Company Number: JP-SA-2013SA098129

PATIENT
  Age: 70 Year
  Sex: Female

DRUGS (2)
  1. IRBETAN [Suspect]
     Indication: HYPERTENSION
     Route: 048
     Dates: start: 20130921, end: 20130924
  2. VALSARTAN [Concomitant]
     Dates: end: 201309

REACTIONS (5)
  - Pyrexia [Recovered/Resolved]
  - Decreased appetite [Recovered/Resolved]
  - Rash [Recovered/Resolved]
  - Intentional drug misuse [Unknown]
  - No adverse event [Unknown]
